FAERS Safety Report 4562439-3 (Version None)
Quarter: 2005Q1

REPORT INFORMATION
  Report Type: 
  Country: None (occurrence: None)
  Receive Date: 20050121
  Receipt Date: 20050117
  Transmission Date: 20050727
  Serious: Yes (Hospitalization)
  Sender: FDA-Public Use
  Company Number: DEWYE344517JAN05

PATIENT
  Age: 27 Year
  Sex: Male

DRUGS (2)
  1. VENLAFAXINE HCL [Suspect]
     Dosage: 18 TABLETS (OVERDOSE AMOUNT: 1350 MG)
     Route: 048
     Dates: start: 20050115, end: 20050115
  2. ZOPICLONE (ZOPICLONE) [Suspect]
     Dosage: 10 TABLETS (OVERDOSE AMOUNT: 75 MG)
     Route: 048
     Dates: start: 20050115, end: 20050115

REACTIONS (2)
  - DEPRESSED LEVEL OF CONSCIOUSNESS [None]
  - INTENTIONAL MISUSE [None]
